FAERS Safety Report 6097055-8 (Version None)
Quarter: 2009Q1

REPORT INFORMATION
  Report Type: 
  Country: None (occurrence: None)
  Receive Date: 20090227
  Receipt Date: 20090220
  Transmission Date: 20090719
  Serious: Yes (Other)
  Sender: FDA-Public Use
  Company Number: PHHY2008DE26579

PATIENT
  Sex: Female
  Weight: 93 kg

DRUGS (2)
  1. FEMARA [Suspect]
     Indication: BREAST CANCER
     Dosage: 2.5 MG, QD
     Route: 048
     Dates: start: 20080201
  2. FEMARA [Suspect]
     Dosage: 2.5 MG, QD
     Route: 048

REACTIONS (5)
  - BREAST PAIN [None]
  - HYPERAESTHESIA [None]
  - RASH [None]
  - SENSORY DISTURBANCE [None]
  - SKIN BURNING SENSATION [None]
